FAERS Safety Report 5995325-2 (Version None)
Quarter: 2008Q4

REPORT INFORMATION
  Report Type: 
  Country: None (occurrence: None)
  Receive Date: 20081212
  Receipt Date: 20080923
  Transmission Date: 20090506
  Serious: No
  Sender: FDA-Public Use
  Company Number: US-ABBOTT-08P-163-0478527-00

PATIENT
  Age: 40 Year
  Sex: Female

DRUGS (2)
  1. HUMIRA PEN [Suspect]
     Indication: JUVENILE ARTHRITIS
     Route: 058
  2. HUMIRA PEN [Suspect]
     Indication: INFLAMMATORY BOWEL DISEASE

REACTIONS (10)
  - EOSINOPHIL COUNT INCREASED [None]
  - FATIGUE [None]
  - FIBROMYALGIA [None]
  - HEPATITIS [None]
  - HYPOAESTHESIA [None]
  - INFLAMMATION [None]
  - LETHARGY [None]
  - LIVER FUNCTION TEST ABNORMAL [None]
  - NEUROPATHY PERIPHERAL [None]
  - PARAESTHESIA [None]
